FAERS Safety Report 17441150 (Version 1)
Quarter: 2020Q1

REPORT INFORMATION
  Report Type: Spontaneous
  Country: US (occurrence: US)
  Receive Date: 20200220
  Receipt Date: 20200220
  Transmission Date: 20200409
  Serious: No
  Sender: FDA-Public Use
  Company Number: US-SA-2020SA043404

PATIENT
  Sex: Female

DRUGS (4)
  1. ATIVAN [Concomitant]
     Active Substance: LORAZEPAM
  2. DUPIXENT [Suspect]
     Active Substance: DUPILUMAB
     Dosage: 300 MG, QOW
     Route: 058
  3. LOTENSIN [TIMOLOL MALEATE] [Concomitant]
  4. NAPROXEN. [Concomitant]
     Active Substance: NAPROXEN

REACTIONS (1)
  - Injection site pain [Not Recovered/Not Resolved]
